FAERS Safety Report 4509594-9 (Version None)
Quarter: 2004Q4

REPORT INFORMATION
  Report Type: 
  Country: None (occurrence: None)
  Receive Date: 20041119
  Receipt Date: 20041031
  Transmission Date: 20050328
  Serious: Yes (Other)
  Sender: FDA-Public Use
  Company Number: USA041182789

PATIENT
  Age: 9 Year

DRUGS (1)
  1. XIGRIS [Suspect]
     Indication: SEPSIS
     Dates: start: 20041030, end: 20041001

REACTIONS (4)
  - DISSEMINATED INTRAVASCULAR COAGULATION [None]
  - INJECTION SITE SWELLING [None]
  - PALLOR [None]
  - THROMBOSIS [None]
